FAERS Safety Report 22533358 (Version 1)
Quarter: 2023Q2

REPORT INFORMATION
  Report Type: Spontaneous
  Country: HR (occurrence: HR)
  Receive Date: 20230608
  Receipt Date: 20230608
  Transmission Date: 20230722
  Serious: Yes (Hospitalization, Other)
  Sender: FDA-Public Use
  Company Number: HR-AMGEN-HRVSP2023094381

PATIENT
  Age: 50 Year
  Sex: Male

DRUGS (3)
  1. TRASTUZUMAB [Suspect]
     Active Substance: TRASTUZUMAB
     Indication: Adenocarcinoma gastric
     Route: 065
  2. CISPLATIN [Concomitant]
     Active Substance: CISPLATIN
     Indication: Adenocarcinoma gastric
     Route: 065
  3. CAPECITABINE [Concomitant]
     Active Substance: CAPECITABINE
     Indication: Adenocarcinoma gastric
     Route: 065

REACTIONS (2)
  - Adenocarcinoma metastatic [Recovered/Resolved]
  - Pneumonia [Recovered/Resolved]
